FAERS Safety Report 24204660 (Version 1)
Quarter: 2024Q3

REPORT INFORMATION
  Report Type: Spontaneous
  Country: US (occurrence: US)
  Receive Date: 20240813
  Receipt Date: 20240813
  Transmission Date: 20241017
  Serious: No
  Sender: PFIZER
  Company Number: US-PFIZER INC-202400233997

PATIENT
  Age: 84 Year
  Sex: Female

DRUGS (1)
  1. IBRANCE [Suspect]
     Active Substance: PALBOCICLIB
     Dosage: TAKE 1 CAPSULE(125 MG) DAILY ON DAYS 1 THROUGH 21 OUT OF EVERY 28 DAYS
     Dates: start: 20240804

REACTIONS (1)
  - Muscle spasms [Not Recovered/Not Resolved]
